FAERS Safety Report 24766556 (Version 1)
Quarter: 2024Q4

REPORT INFORMATION
  Report Type: Spontaneous
  Country: GB (occurrence: None)
  Receive Date: 20241223
  Receipt Date: 20241223
  Transmission Date: 20250115
  Serious: Yes (Disabling)
  Sender: Public
  Company Number: None

PATIENT
  Age: 25 Year
  Sex: Female
  Weight: 75.6 kg

DRUGS (1)
  1. ZOLOFT [Suspect]
     Active Substance: SERTRALINE HYDROCHLORIDE
     Indication: Mental impairment
     Dosage: FREQUENCY : DAILY;?
     Route: 048

REACTIONS (6)
  - Genital anaesthesia [None]
  - Cognitive disorder [None]
  - Female orgasmic disorder [None]
  - Hypoaesthesia [None]
  - Fatigue [None]
  - Flat affect [None]

NARRATIVE: CASE EVENT DATE: 20240505
